FAERS Safety Report 19778344 (Version 1)
Quarter: 2021Q3

REPORT INFORMATION
  Report Type: Spontaneous
  Country: US (occurrence: US)
  Receive Date: 20210902
  Receipt Date: 20210902
  Transmission Date: 20211014
  Serious: Yes (Other)
  Sender: FDA-Public Use
  Company Number: US-TEVA-2021-US-1946469

PATIENT
  Age: 36 Year
  Sex: Male

DRUGS (1)
  1. OXYCODONE/ACETAMINOPHEN [Suspect]
     Active Substance: ACETAMINOPHEN\OXYCODONE HYDROCHLORIDE
     Dosage: 10MG/325MG
     Route: 065

REACTIONS (11)
  - Dependence [Recovered/Resolved]
  - Withdrawal syndrome [Recovered/Resolved]
  - Fall [Recovered/Resolved with Sequelae]
  - Rehabilitation therapy [Unknown]
  - Loss of consciousness [Recovered/Resolved]
  - Scar [Not Recovered/Not Resolved]
  - Hepatitis C [Not Recovered/Not Resolved]
  - Anxiety [Not Recovered/Not Resolved]
  - Depression [Unknown]
  - Detoxification [Recovered/Resolved]
  - Overdose [Unknown]
